FAERS Safety Report 23148223 (Version 1)
Quarter: 2023Q4

REPORT INFORMATION
  Report Type: Report from Study
  Country: FR (occurrence: FR)
  Receive Date: 20231106
  Receipt Date: 20231106
  Transmission Date: 20240110
  Serious: Yes (Death, Other)
  Sender: FDA-Public Use
  Company Number: FR-JNJFOC-20231073269

PATIENT
  Age: 70 Year
  Sex: Male

DRUGS (3)
  1. BORTEZOMIB [Suspect]
     Active Substance: BORTEZOMIB
     Indication: Plasma cell myeloma
     Dosage: 2.6 MILLIGRAM
     Route: 065
     Dates: end: 20201112
  2. MELPHALAN [Suspect]
     Active Substance: MELPHALAN
     Indication: Plasma cell myeloma
     Dosage: 16 MILLIGRAM, 1/WEEK
     Route: 065
     Dates: end: 20201112
  3. PREDNISONE [Suspect]
     Active Substance: PREDNISONE
     Indication: Plasma cell myeloma
     Dosage: 200 MILLIGRAM
     Route: 065
     Dates: end: 20201112

REACTIONS (4)
  - Respiratory distress [Fatal]
  - Plasma cell myeloma [Unknown]
  - Off label use [Unknown]
  - Intentional product use issue [Unknown]
